FAERS Safety Report 22200018 (Version 1)
Quarter: 2023Q2

REPORT INFORMATION
  Report Type: Spontaneous
  Country: CN (occurrence: None)
  Receive Date: 20230412
  Receipt Date: 20230412
  Transmission Date: 20230722
  Serious: Yes (Other)
  Sender: FDA-Public Use
  Company Number: 2023A082978

PATIENT
  Sex: Female

DRUGS (1)
  1. TAGRISSO [Suspect]
     Active Substance: OSIMERTINIB
     Route: 048

REACTIONS (9)
  - Cerebral thrombosis [Recovering/Resolving]
  - Movement disorder [Unknown]
  - Palpitations [Unknown]
  - Balance disorder [Unknown]
  - Heart rate increased [Recovering/Resolving]
  - Gait inability [Unknown]
  - Cardiac discomfort [Unknown]
  - Hypophagia [Unknown]
  - Heart sounds abnormal [Unknown]
